FAERS Safety Report 4302058-7 (Version None)
Quarter: 2004Q1

REPORT INFORMATION
  Report Type: 
  Country: None (occurrence: None)
  Receive Date: 20040220
  Receipt Date: 20040212
  Transmission Date: 20041129
  Serious: No
  Sender: FDA-Public Use
  Company Number: 03P-087-0245767-00

PATIENT
  Age: 50 Year
  Sex: Male

DRUGS (11)
  1. AKINETON [Suspect]
     Dosage: 6 MG, 1 IN 1 D, ORAL
     Route: 048
     Dates: end: 20030821
  2. ZOTEPINE [Suspect]
     Indication: SCHIZOPHRENIA
     Dosage: 150 MG, 1 IN 1 D, ORAL
     Route: 048
     Dates: end: 20030821
  3. QUETIAPINE [Suspect]
     Indication: SCHIZOPHRENIA, PARANOID TYPE
     Dosage: 25 MG, 3 IN 1 D, ORAL
     Route: 048
     Dates: start: 20030808, end: 20030821
  4. HALOPERIDOL [Suspect]
     Dosage: 26 MG, 1 IN 1 D, ORAL
     Route: 048
     Dates: end: 20030821
  5. TRIHEXYPHENIDYL HCL [Suspect]
     Dosage: 6 MG, 1 IN 1 D, ORAL
     Route: 048
     Dates: end: 20030821
  6. VEGETAMIN [Suspect]
     Dosage: ORAL
     Route: 048
     Dates: end: 20030821
  7. CARBAMAZEPINE [Concomitant]
  8. BROMAZEPAM [Concomitant]
  9. FLUNITRAZEPAM [Concomitant]
  10. ALOSENN [Concomitant]
  11. MOSAPRIDE CITRATE [Concomitant]

REACTIONS (1)
  - ILEUS [None]
